FAERS Safety Report 26185527 (Version 1)
Quarter: 2025Q4

REPORT INFORMATION
  Report Type: Spontaneous
  Country: GB (occurrence: GB)
  Receive Date: 20251222
  Receipt Date: 20251222
  Transmission Date: 20260118
  Serious: Yes (Other)
  Sender: ADVANZ PHARMA
  Company Number: GB-SANDOZ-SDZ2025GB092541

PATIENT

DRUGS (2)
  1. PREDNISOLONE [Suspect]
     Active Substance: PREDNISOLONE
     Indication: Product used for unknown indication
     Dosage: 7.5 MG (5 MG TAB 28 ACC), TABLET
  2. TACROLIMUS [Suspect]
     Active Substance: TACROLIMUS
     Indication: Product used for unknown indication
     Dosage: UNK, BID (1MG / 2MG TWICE A DAY)
     Route: 048

REACTIONS (1)
  - Neoplasm malignant [Recovered/Resolved]
